FAERS Safety Report 10383742 (Version 1)
Quarter: 2014Q3

REPORT INFORMATION
  Report Type: Spontaneous
  Country: US (occurrence: US)
  Receive Date: 20140814
  Receipt Date: 20140814
  Transmission Date: 20150326
  Serious: No
  Sender: FDA-Public Use
  Company Number: US-BAYER-2014-121203

PATIENT
  Sex: Female

DRUGS (2)
  1. COPAXONE [Suspect]
     Active Substance: GLATIRAMER ACETATE
     Dosage: UNK UNK, UNK
  2. BETASERON [Suspect]
     Active Substance: INTERFERON BETA-1B
     Dosage: UNK, UNK UNK

REACTIONS (3)
  - Injection site reaction [None]
  - Influenza like illness [None]
  - Pyrexia [None]
